FAERS Safety Report 15555653 (Version 1)
Quarter: 2018Q4

REPORT INFORMATION
  Report Type: Spontaneous
  Country: FR (occurrence: FR)
  Receive Date: 20181026
  Receipt Date: 20181026
  Transmission Date: 20190205
  Serious: Yes (Life-Threatening)
  Sender: FDA-Public Use
  Company Number: FR-ASTRAZENECA-2018SF37561

PATIENT
  Age: 44 Year
  Sex: Male

DRUGS (11)
  1. CETIRIZINE [Concomitant]
     Active Substance: CETIRIZINE HYDROCHLORIDE
  2. TOPALGIC (SUPROFEN) [Concomitant]
     Active Substance: SUPROFEN
  3. INEXIUM [Suspect]
     Active Substance: ESOMEPRAZOLE
     Indication: GASTRIC ULCER
     Route: 048
     Dates: end: 20150914
  4. INEXIUM [Suspect]
     Active Substance: ESOMEPRAZOLE
     Indication: GASTRIC ULCER
     Route: 048
     Dates: end: 20160523
  5. TRIFLUCAN [Suspect]
     Active Substance: FLUCONAZOLE
     Indication: SEPTIC SHOCK
     Route: 065
     Dates: start: 20150818, end: 20150914
  6. BRICANYL [Concomitant]
     Active Substance: TERBUTALINE SULFATE
  7. TAZOCILLINE [Suspect]
     Active Substance: PIPERACILLIN SODIUM\TAZOBACTAM SODIUM
     Indication: SEPTIC SHOCK
     Route: 042
     Dates: start: 20150818, end: 20150914
  8. CALCIPARINE [Concomitant]
     Active Substance: HEPARIN CALCIUM
  9. ATROVENT [Concomitant]
     Active Substance: IPRATROPIUM BROMIDE
  10. LOXEN (NICARDIPINE HYDROCHLORIDE) [Concomitant]
     Active Substance: NICARDIPINE HYDROCHLORIDE
  11. PERFALGAN [Concomitant]
     Active Substance: ACETAMINOPHEN

REACTIONS (1)
  - Drug reaction with eosinophilia and systemic symptoms [Recovered/Resolved]

NARRATIVE: CASE EVENT DATE: 20150914
